FAERS Safety Report 20585280 (Version 1)
Quarter: 2022Q1

REPORT INFORMATION
  Report Type: Spontaneous
  Country: CO (occurrence: CO)
  Receive Date: 20220312
  Receipt Date: 20220312
  Transmission Date: 20220424
  Serious: Yes (Other)
  Sender: FDA-Public Use
  Company Number: CO-PFIZER INC-202200333883

PATIENT
  Age: 63 Year
  Sex: Female

DRUGS (1)
  1. ENBREL [Suspect]
     Active Substance: ETANERCEPT
     Indication: Product used for unknown indication
     Dosage: 50 MG, EACH 15 DAYS
     Route: 058

REACTIONS (5)
  - Hypothyroidism [Not Recovered/Not Resolved]
  - Wound [Recovering/Resolving]
  - Varicose vein [Recovering/Resolving]
  - Amnesia [Not Recovered/Not Resolved]
  - Off label use [Unknown]
